FAERS Safety Report 7922749-6 (Version None)
Quarter: 2011Q4

REPORT INFORMATION
  Report Type: 
  Country: None (occurrence: None)
  Receive Date: 20111117
  Receipt Date: 20110822
  Transmission Date: 20120403
  Serious: No
  Sender: FDA-Public Use
  Company Number: US-ALLERGAN-1111238US

PATIENT
  Age: 79 Year
  Sex: Female

DRUGS (3)
  1. MURINE                             /00256502/ [Concomitant]
     Indication: DRY EYE
     Dosage: UNK
     Route: 047
  2. BLINK                              /00582501/ [Concomitant]
     Indication: DRY EYE
     Dosage: UNK
     Route: 047
  3. COMBIGAN [Suspect]
     Indication: GLAUCOMA
     Dosage: 1 GTT, BID
     Route: 047
     Dates: start: 20110401

REACTIONS (7)
  - VISION BLURRED [None]
  - ERYTHEMA OF EYELID [None]
  - EYE DISCHARGE [None]
  - ERYTHEMA [None]
  - EYE PAIN [None]
  - SKIN EXFOLIATION [None]
  - OCULAR HYPERAEMIA [None]
